FAERS Safety Report 16764295 (Version 2)
Quarter: 2019Q3

REPORT INFORMATION
  Report Type: Spontaneous
  Country: DE (occurrence: DE)
  Receive Date: 20190902
  Receipt Date: 20190910
  Transmission Date: 20191005
  Serious: Yes (Hospitalization, Other)
  Sender: FDA-Public Use
  Company Number: DE-TESARO-2019-TSO02989-DE

PATIENT

DRUGS (3)
  1. NOVALGIN (METAMIZOLE SODIUM) [Concomitant]
     Active Substance: METAMIZOLE SODIUM
     Indication: PRODUCT USED FOR UNKNOWN INDICATION
     Dosage: UNK
  2. ZEJULA [Suspect]
     Active Substance: NIRAPARIB
     Dosage: UNKNOWN (DOSE REDUCED)
     Route: 048
     Dates: start: 2019, end: 201908
  3. ZEJULA [Suspect]
     Active Substance: NIRAPARIB
     Indication: OVARIAN CANCER
     Dosage: 1 CAPSULE, 3 TIMES
     Route: 048
     Dates: start: 2019, end: 2019

REACTIONS (7)
  - Abdominal pain [Unknown]
  - Ascites [Unknown]
  - Neoplasm progression [Unknown]
  - Aphasia [Unknown]
  - Movement disorder [Unknown]
  - Abdominal distension [Unknown]
  - Eating disorder [Unknown]

NARRATIVE: CASE EVENT DATE: 2019
